FAERS Safety Report 8154554-2 (Version None)
Quarter: 2012Q1

REPORT INFORMATION
  Report Type: 
  Country: None (occurrence: None)
  Receive Date: 20120221
  Receipt Date: 20120210
  Transmission Date: 20120608
  Serious: Yes (Hospitalization)
  Sender: FDA-Public Use
  Company Number: IE-ELI_LILLY_AND_COMPANY-IE201202003453

PATIENT
  Sex: Male

DRUGS (2)
  1. FORTEO [Suspect]
     Indication: FRACTURE
     Dosage: 20 MG, UNK
     Dates: start: 20111209
  2. CRESTOR [Concomitant]

REACTIONS (2)
  - BONE GRAFT [None]
  - INTENTIONAL DRUG MISUSE [None]
